FAERS Safety Report 24210316 (Version 1)
Quarter: 2024Q3

REPORT INFORMATION
  Report Type: Spontaneous
  Country: IL (occurrence: IL)
  Receive Date: 20240814
  Receipt Date: 20240814
  Transmission Date: 20241017
  Serious: Yes (Hospitalization)
  Sender: JOHNSON AND JOHNSON
  Company Number: IL-JNJFOC-20240768626

PATIENT
  Sex: Male

DRUGS (2)
  1. TALQUETAMAB [Suspect]
     Active Substance: TALQUETAMAB
     Indication: Product used for unknown indication
     Route: 065
  2. SELINEXOR [Concomitant]
     Active Substance: SELINEXOR

REACTIONS (2)
  - Hypercalcaemia [Recovering/Resolving]
  - Stomatitis [Unknown]
